FAERS Safety Report 5241817-3 (Version None)
Quarter: 2007Q1

REPORT INFORMATION
  Report Type: 
  Country: None (occurrence: None)
  Receive Date: 20061208
  Receipt Date: 20050818
  Transmission Date: 20070707
  Serious: Yes (Other)
  Sender: FDA-Public Use
  Company Number: 2005UW12312

PATIENT
  Age: 67 Year
  Sex: Female
  Weight: 87.996 kg

DRUGS (4)
  1. CRESTOR [Suspect]
     Indication: BLOOD CHOLESTEROL INCREASED
     Dosage: 10 MG PO
     Route: 048
  2. CARDIZEM [Concomitant]
  3. ISOSORBIDE [Concomitant]
  4. ALDACTONE [Concomitant]

REACTIONS (4)
  - ARTHRALGIA [None]
  - BURSITIS [None]
  - NECK PAIN [None]
  - PAIN IN EXTREMITY [None]
